FAERS Safety Report 25325014 (Version 1)
Quarter: 2025Q2

REPORT INFORMATION
  Report Type: Spontaneous
  Country: US (occurrence: None)
  Receive Date: 20250516
  Receipt Date: 20250516
  Transmission Date: 20250716
  Serious: No
  Sender: FDA-CTU
  Company Number: None

PATIENT
  Age: 70 Year
  Sex: Female
  Weight: 52.11 kg

DRUGS (22)
  1. COSENTYX [Suspect]
     Active Substance: SECUKINUMAB
     Indication: Psoriatic arthropathy
     Dosage: OTHER QUANTITY : 1 INJECTION(S);?FREQUENCY : DAILY;?
     Route: 061
     Dates: start: 20250511
  2. DEVICE [Concomitant]
     Active Substance: DEVICE
  3. Watchman [Concomitant]
  4. TORSEMIDE [Concomitant]
     Active Substance: TORSEMIDE
  5. SYNTHROID [Concomitant]
     Active Substance: LEVOTHYROXINE SODIUM
  6. PROLIA [Concomitant]
     Active Substance: DENOSUMAB
  7. TRAMADOL [Concomitant]
     Active Substance: TRAMADOL
  8. VALSARTAN [Concomitant]
     Active Substance: VALSARTAN
  9. NADOLOL [Concomitant]
     Active Substance: NADOLOL
  10. COMBIVENT RESPIMAT [Concomitant]
     Active Substance: ALBUTEROL SULFATE\IPRATROPIUM BROMIDE
  11. halpbetasol cream [Concomitant]
  12. econazole nitrate cream [Concomitant]
  13. DESONIDE [Concomitant]
     Active Substance: DESONIDE
  14. TACROLIMUS [Concomitant]
     Active Substance: TACROLIMUS
  15. FERROUS GLUCONATE [Concomitant]
     Active Substance: FERROUS GLUCONATE
  16. ESCITALOPRAM OXALATE [Concomitant]
     Active Substance: ESCITALOPRAM OXALATE
  17. CYCLOSPORINE [Concomitant]
     Active Substance: CYCLOSPORINE
  18. COLACE [Concomitant]
     Active Substance: DOCUSATE SODIUM
  19. ASPIRIN [Concomitant]
     Active Substance: ASPIRIN
  20. VITAMINS [Concomitant]
     Active Substance: VITAMINS
  21. tx-iron-Ca-FA-min [Concomitant]
  22. CALCIUM CARBONATE\CHOLECALCIFEROL [Concomitant]
     Active Substance: CALCIUM CARBONATE\CHOLECALCIFEROL

REACTIONS (7)
  - Nasopharyngitis [None]
  - Headache [None]
  - Chills [None]
  - Pain in extremity [None]
  - Arthralgia [None]
  - Weight bearing difficulty [None]
  - Fatigue [None]

NARRATIVE: CASE EVENT DATE: 20250511
